FAERS Safety Report 9225162 (Version 1)
Quarter: 2013Q2

REPORT INFORMATION
  Report Type: Spontaneous
  Country: US (occurrence: None)
  Receive Date: 20130410
  Receipt Date: 20130410
  Transmission Date: 20140414
  Serious: Yes (Hospitalization)
  Sender: FDA-Public Use
  Company Number: None

PATIENT
  Age: 57 Year
  Sex: Female
  Weight: 42.6 kg

DRUGS (1)
  1. HYDROMORPHONE [Suspect]
     Route: 042

REACTIONS (3)
  - Somnolence [None]
  - Condition aggravated [None]
  - Incorrect dose administered [None]
